FAERS Safety Report 6308400-X (Version None)
Quarter: 2009Q3

REPORT INFORMATION
  Report Type: 
  Country: None (occurrence: None)
  Receive Date: 20090813
  Receipt Date: 20090804
  Transmission Date: 20100115
  Serious: Yes (Other)
  Sender: FDA-Public Use
  Company Number: FR-AVENTIS-200814337FR

PATIENT
  Age: 28 Year
  Sex: Female

DRUGS (3)
  1. APIDRA [Suspect]
     Route: 058
  2. ALDOMET                            /00000101/ [Concomitant]
     Route: 048
     Dates: start: 20090301, end: 20090616
  3. LEVOTHYROX [Concomitant]
     Indication: HYPOTHYROIDISM
     Dosage: DOSE: 67.5 TO 150
     Route: 048

REACTIONS (3)
  - DRUG EXPOSURE DURING PREGNANCY [None]
  - ECLAMPSIA [None]
  - HYPOGLYCAEMIA [None]
